FAERS Safety Report 15344020 (Version 1)
Quarter: 2018Q3

REPORT INFORMATION
  Report Type: Spontaneous
  Country: BR (occurrence: BR)
  Receive Date: 20180903
  Receipt Date: 20180903
  Transmission Date: 20181010
  Serious: Yes (Hospitalization, Other)
  Sender: FDA-Public Use
  Company Number: BR-009507513-1808BRA011262

PATIENT
  Age: 67 Year
  Sex: Male

DRUGS (2)
  1. TEICOPLANIN [Concomitant]
     Active Substance: TEICOPLANIN
     Indication: ANTI-INFECTIVE THERAPY
     Dosage: 200 MG, EVERY 48 HOURS
     Route: 042
     Dates: start: 20180621
  2. INVANZ [Suspect]
     Active Substance: ERTAPENEM SODIUM
     Indication: ANTI-INFECTIVE THERAPY
     Dosage: 500 MG, ONCE A DAY
     Route: 042
     Dates: start: 20180621

REACTIONS (4)
  - Inappropriate schedule of drug administration [Unknown]
  - Postoperative wound infection [Unknown]
  - Chronic kidney disease [Unknown]
  - Seizure [Unknown]

NARRATIVE: CASE EVENT DATE: 20180705
